FAERS Safety Report 10888270 (Version 1)
Quarter: 2015Q1

REPORT INFORMATION
  Report Type: Spontaneous
  Country: CA (occurrence: CA)
  Receive Date: 20150304
  Receipt Date: 20150304
  Transmission Date: 20150721
  Serious: Yes (Other)
  Sender: FDA-Public Use
  Company Number: CA-MYLANLABS-2010S1005343

PATIENT

DRUGS (1)
  1. CLONIDINE. [Suspect]
     Active Substance: CLONIDINE
     Dosage: UNK
     Route: 048

REACTIONS (5)
  - Miosis [Recovering/Resolving]
  - Atrioventricular block first degree [Recovering/Resolving]
  - Lethargy [Recovering/Resolving]
  - Respiratory depression [Recovering/Resolving]
  - Accidental overdose [Recovering/Resolving]
